FAERS Safety Report 14566895 (Version 1)
Quarter: 2018Q1

REPORT INFORMATION
  Report Type: Spontaneous
  Country: US (occurrence: US)
  Receive Date: 20180222
  Receipt Date: 20180222
  Transmission Date: 20180509
  Serious: No
  Sender: FDA-Public Use
  Company Number: None

PATIENT
  Age: 34 Year
  Sex: Female
  Weight: 92.7 kg

DRUGS (4)
  1. SYNTHROID [Concomitant]
     Active Substance: LEVOTHYROXINE SODIUM
  2. TOPAMAX [Concomitant]
     Active Substance: TOPIRAMATE
  3. ENBREL [Suspect]
     Active Substance: ETANERCEPT
     Indication: RHEUMATOID ARTHRITIS
     Dosage: ?          QUANTITY:1 INJECTION(S);OTHER FREQUENCY:WEEKLY;?
     Route: 058
     Dates: start: 20180202
  4. FAMOTIDINE. [Concomitant]
     Active Substance: FAMOTIDINE

REACTIONS (9)
  - Arthralgia [None]
  - Injection site coldness [None]
  - Dizziness [None]
  - Headache [None]
  - Fatigue [None]
  - Condition aggravated [None]
  - Injection site reaction [None]
  - Myalgia [None]
  - Paraesthesia [None]

NARRATIVE: CASE EVENT DATE: 20180206
